FAERS Safety Report 6924156-1 (Version None)
Quarter: 2010Q3

REPORT INFORMATION
  Report Type: 
  Country: None (occurrence: None)
  Receive Date: 20100812
  Receipt Date: 20100812
  Transmission Date: 20110219
  Serious: No
  Sender: FDA-Public Use
  Company Number: None

PATIENT
  Age: 59 Year
  Sex: Female
  Weight: 74.3899 kg

DRUGS (1)
  1. ACTENOL 150 MG P + G [Suspect]
     Indication: OSTEOPENIA
     Dosage: 150MG ONCE A MONTH PO, MONTHLY PILL
     Route: 048

REACTIONS (4)
  - GASTROOESOPHAGEAL REFLUX DISEASE [None]
  - INADEQUATE ANALGESIA [None]
  - PAIN [None]
  - PYREXIA [None]
